FAERS Safety Report 7823060-4 (Version None)
Quarter: 2011Q4

REPORT INFORMATION
  Report Type: 
  Country: None (occurrence: None)
  Receive Date: 20111018
  Receipt Date: 20110614
  Transmission Date: 20120403
  Serious: No
  Sender: FDA-Public Use
  Company Number: US-ASTRAZENECA-2010SE60436

PATIENT
  Age: 41 Year
  Sex: Male

DRUGS (3)
  1. LEXAPRO [Concomitant]
  2. SYMBICORT [Suspect]
     Indication: ASTHMA
     Route: 055
  3. NEXIUM [Suspect]
     Indication: GASTROOESOPHAGEAL REFLUX DISEASE
     Route: 048

REACTIONS (3)
  - DRUG DOSE OMISSION [None]
  - DRUG INEFFECTIVE [None]
  - DYSPNOEA [None]
